FAERS Safety Report 15570529 (Version 3)
Quarter: 2019Q3

REPORT INFORMATION
  Report Type: Spontaneous
  Country: PH (occurrence: PH)
  Receive Date: 20181031
  Receipt Date: 20190827
  Transmission Date: 20191004
  Serious: Yes (Life-Threatening, Other)
  Sender: FDA-Public Use
  Company Number: PH-PFIZER INC-2018441740

PATIENT
  Age: 36 Year
  Sex: Female

DRUGS (21)
  1. LINEZOLID. [Suspect]
     Active Substance: LINEZOLID
     Indication: CARDIAC PSEUDOANEURYSM
     Dosage: UNK
  2. CLINDAMYCIN. [Concomitant]
     Active Substance: CLINDAMYCIN
     Indication: VASCULAR PSEUDOANEURYSM
  3. RIFAMPICIN [Concomitant]
     Active Substance: RIFAMPIN
     Indication: PULMONARY TUBERCULOSIS
     Dosage: UNK
  4. ETHAMBUTOL [Concomitant]
     Active Substance: ETHAMBUTOL HYDROCHLORIDE
     Indication: PULMONARY TUBERCULOSIS
  5. PYRAZINAMIDE. [Concomitant]
     Active Substance: PYRAZINAMIDE
     Indication: PULMONARY TUBERCULOSIS
  6. TRAMADOL. [Suspect]
     Active Substance: TRAMADOL
     Indication: PAIN MANAGEMENT
  7. PIPERACILLIN/SULBACTAM [Concomitant]
     Indication: PNEUMONIA
     Dosage: UNK
  8. CO-AMOXICLAVE [Concomitant]
     Active Substance: AMOXICILLIN\CLAVULANATE POTASSIUM
     Indication: VASCULAR PSEUDOANEURYSM
  9. RIFAMPICIN [Concomitant]
     Active Substance: RIFAMPIN
     Indication: EVIDENCE BASED TREATMENT
  10. ISONIAZID. [Suspect]
     Active Substance: ISONIAZID
     Indication: PULMONARY TUBERCULOSIS
  11. VANCOMYCIN [Concomitant]
     Active Substance: VANCOMYCIN
     Indication: PNEUMONIA
     Dosage: UNK
  12. ETHAMBUTOL [Concomitant]
     Active Substance: ETHAMBUTOL HYDROCHLORIDE
     Indication: EVIDENCE BASED TREATMENT
  13. VANCOMYCIN [Concomitant]
     Active Substance: VANCOMYCIN
     Indication: CARDIAC PSEUDOANEURYSM
  14. LINEZOLID. [Suspect]
     Active Substance: LINEZOLID
     Indication: PNEUMONIA
  15. ISONIAZID. [Suspect]
     Active Substance: ISONIAZID
     Indication: TUBERCULOSIS
     Dosage: UNK
  16. PYRAZINAMIDE. [Concomitant]
     Active Substance: PYRAZINAMIDE
     Indication: EVIDENCE BASED TREATMENT
  17. ISONIAZID. [Suspect]
     Active Substance: ISONIAZID
     Indication: EVIDENCE BASED TREATMENT
  18. TRAMADOL. [Suspect]
     Active Substance: TRAMADOL
     Indication: PNEUMONIA
  19. TRAMADOL. [Suspect]
     Active Substance: TRAMADOL
     Indication: CARDIAC PSEUDOANEURYSM
     Dosage: UNK
  20. PIPERACILLIN/SULBACTAM [Concomitant]
     Indication: CARDIAC PSEUDOANEURYSM
  21. CEFIXIME. [Concomitant]
     Active Substance: CEFIXIME
     Indication: VASCULAR PSEUDOANEURYSM

REACTIONS (3)
  - Rhabdomyolysis [Recovering/Resolving]
  - Serotonin syndrome [Recovering/Resolving]
  - Chest pain [Recovering/Resolving]
